FAERS Safety Report 7511750-2 (Version None)
Quarter: 2011Q2

REPORT INFORMATION
  Report Type: 
  Country: None (occurrence: None)
  Receive Date: 20110531
  Receipt Date: 20110517
  Transmission Date: 20111010
  Serious: Yes (Other)
  Sender: FDA-Public Use
  Company Number: JP-ELI_LILLY_AND_COMPANY-JP201105005319

PATIENT
  Sex: Female

DRUGS (12)
  1. ALLOPURINOL [Concomitant]
  2. PREDNISOLONE [Concomitant]
  3. GLYSENNID [Concomitant]
  4. VOLTAREN                                /SCH/ [Concomitant]
  5. ACTONEL [Concomitant]
  6. OLMESARTAN MEDOXOMIL [Concomitant]
  7. ALOSENN                            /00476901/ [Concomitant]
  8. METHYCOBAL [Concomitant]
  9. FOLIC ACID [Concomitant]
     Route: 048
  10. FORTEO [Suspect]
     Dosage: UNK
     Route: 058
     Dates: start: 20110510, end: 20110501
  11. ADALAT CR                               /SCH/ [Concomitant]
  12. RHEUMATREX [Concomitant]
     Route: 048

REACTIONS (3)
  - HEADACHE [None]
  - HYPOTENSION [None]
  - PALPITATIONS [None]
